FAERS Safety Report 11670008 (Version 1)
Quarter: 2015Q4

REPORT INFORMATION
  Report Type: Spontaneous
  Country: US (occurrence: US)
  Receive Date: 20151027
  Receipt Date: 20151027
  Transmission Date: 20160304
  Serious: No
  Sender: FDA-Public Use
  Company Number: US-ELI_LILLY_AND_COMPANY-US201004006726

PATIENT
  Age: 70 Year
  Sex: Female

DRUGS (2)
  1. FORTEO [Suspect]
     Active Substance: TERIPARATIDE
     Dosage: 20 UG, DAILY (1/D)
     Dates: start: 200912
  2. FORTEO [Suspect]
     Active Substance: TERIPARATIDE
     Indication: OSTEOPOROSIS
     Dates: start: 2008, end: 2008

REACTIONS (6)
  - Overdose [Unknown]
  - Injection site discolouration [Unknown]
  - Injection site bruising [Unknown]
  - Spinal compression fracture [Unknown]
  - Fall [Unknown]
  - Injection site erythema [Unknown]

NARRATIVE: CASE EVENT DATE: 20100422
